FAERS Safety Report 8926719 (Version 2)
Quarter: 2012Q4

REPORT INFORMATION
  Report Type: 
  Country: ES (occurrence: ES)
  Receive Date: 20121127
  Receipt Date: 20121130
  Transmission Date: 20130627
  Serious: Yes (Other)
  Sender: FDA-Public Use
  Company Number: ES-PFIZER INC-2012295606

PATIENT
  Age: 81 Year
  Sex: Female

DRUGS (1)
  1. CARBOPLATINO [Suspect]
     Indication: OVARIAN CANCER
     Dosage: UNK
     Dates: start: 20120605, end: 20120605

REACTIONS (9)
  - Hypotension [Recovered/Resolved]
  - Oxygen saturation decreased [Recovered/Resolved]
  - Feeling hot [Recovered/Resolved]
  - Flushing [Recovered/Resolved]
  - Syncope [Recovered/Resolved]
  - Erythema [Recovered/Resolved]
  - Tremor [Recovered/Resolved]
  - Urticaria [Recovered/Resolved]
  - Atonic urinary bladder [Recovered/Resolved]
